FAERS Safety Report 7633393-2 (Version None)
Quarter: 2011Q3

REPORT INFORMATION
  Report Type: 
  Country: None (occurrence: None)
  Receive Date: 20110725
  Receipt Date: 20101209
  Transmission Date: 20111222
  Serious: Yes (Hospitalization)
  Sender: FDA-Public Use
  Company Number: US-BRISTOL-MYERS SQUIBB COMPANY-15433345

PATIENT
  Age: 19 Year
  Sex: Female

DRUGS (1)
  1. SPRYCEL [Suspect]

REACTIONS (2)
  - HEPATIC ENZYME INCREASED [None]
  - PSEUDOMONAL SEPSIS [None]
